FAERS Safety Report 9240602 (Version 2)
Quarter: 2013Q2

REPORT INFORMATION
  Report Type: Report from Study
  Country: US (occurrence: US)
  Receive Date: 20130418
  Receipt Date: 20130513
  Transmission Date: 20140414
  Serious: Yes (Other)
  Sender: FDA-Public Use
  Company Number: US-ALEXION-A201300794

PATIENT
  Sex: Female

DRUGS (6)
  1. SOLIRIS [Suspect]
     Indication: PAROXYSMAL NOCTURNAL HAEMOGLOBINURIA
     Dosage: UNK
     Route: 042
     Dates: start: 2007
  2. COUMADIN [Concomitant]
     Dosage: 10 MG, QD
  3. EFFEXOR [Concomitant]
     Dosage: 37.5 UNK, BID
  4. MORPHINE [Concomitant]
     Indication: PAIN
     Dosage: UNK, PRN
  5. POTASSIUM [Concomitant]
  6. FOLIC ACID [Concomitant]

REACTIONS (1)
  - Myelodysplastic syndrome [Not Recovered/Not Resolved]
